FAERS Safety Report 13647941 (Version 5)
Quarter: 2017Q4

REPORT INFORMATION
  Report Type: Spontaneous
  Country: US (occurrence: US)
  Receive Date: 20170613
  Receipt Date: 20171016
  Transmission Date: 20180320
  Serious: Yes (Other)
  Sender: FDA-Public Use
  Company Number: US-PFIZER INC-2017252297

PATIENT
  Age: 54 Year
  Sex: Female
  Weight: 59 kg

DRUGS (4)
  1. ALLEGRA [Concomitant]
     Active Substance: FEXOFENADINE HYDROCHLORIDE
     Indication: SEASONAL ALLERGY
     Dosage: 180 MG, 1X/DAY
  2. DUAVEE [Suspect]
     Active Substance: BAZEDOXIFENE ACETATE\ESTROGENS, CONJUGATED
     Indication: MENOPAUSAL SYMPTOMS
     Dosage: 0.45 MG, 1X/DAY
     Route: 048
     Dates: start: 201705, end: 20170604
  3. DUAVEE [Suspect]
     Active Substance: BAZEDOXIFENE ACETATE\ESTROGENS, CONJUGATED
     Indication: BONE LOSS
     Dosage: UNK
     Route: 048
     Dates: start: 20170523
  4. SYNTHROID [Concomitant]
     Active Substance: LEVOTHYROXINE SODIUM
     Indication: HYPOTHYROIDISM
     Dosage: ONE TABLET FOR 6 DAYS, AND 7TH DAY TAKES 1/2 TABLET
     Dates: start: 2002

REACTIONS (13)
  - Peripheral swelling [Not Recovered/Not Resolved]
  - Feeling hot [Recovering/Resolving]
  - Injury corneal [Recovering/Resolving]
  - Joint swelling [Not Recovered/Not Resolved]
  - Mental impairment [Unknown]
  - Swelling face [Recovering/Resolving]
  - Skin mass [Recovering/Resolving]
  - Paraesthesia [Recovering/Resolving]
  - Headache [Unknown]
  - Intentional product misuse [Unknown]
  - Limb discomfort [Recovering/Resolving]
  - Pain [Not Recovered/Not Resolved]
  - Abnormal behaviour [Unknown]

NARRATIVE: CASE EVENT DATE: 201706
